FAERS Safety Report 17539928 (Version 1)
Quarter: 2020Q1

REPORT INFORMATION
  Report Type: Report from Study
  Country: MA (occurrence: MA)
  Receive Date: 20200313
  Receipt Date: 20200313
  Transmission Date: 20200409
  Serious: Yes (Death, Hospitalization)
  Sender: FDA-Public Use
  Company Number: NVSC2019MA076968

PATIENT
  Age: 45 Year
  Sex: Male

DRUGS (2)
  1. AFINITOR [Suspect]
     Active Substance: EVEROLIMUS
     Indication: BREAST CANCER
     Dosage: 5 MG, BID
     Route: 048
     Dates: start: 20191206
  2. AFINITOR [Suspect]
     Active Substance: EVEROLIMUS
     Indication: NEUROENDOCRINE TUMOUR

REACTIONS (8)
  - Skin discolouration [Recovered/Resolved]
  - Oral pain [Recovering/Resolving]
  - Speech disorder [Recovering/Resolving]
  - Anaemia [Fatal]
  - Stomatitis [Recovered/Resolved]
  - Eating disorder [Recovering/Resolving]
  - Mouth ulceration [Recovering/Resolving]
  - Haemoglobin decreased [Unknown]

NARRATIVE: CASE EVENT DATE: 20191213
